FAERS Safety Report 5671622-5 (Version None)
Quarter: 2008Q1

REPORT INFORMATION
  Report Type: 
  Country: None (occurrence: None)
  Receive Date: 20080313
  Receipt Date: 20080303
  Transmission Date: 20080703
  Serious: Yes (Death)
  Sender: FDA-Public Use
  Company Number: GXKR2008FR02224

PATIENT
  Sex: Female

DRUGS (2)
  1. AZATHIOPRINE [Suspect]
     Indication: IMMUNOSUPPRESSANT DRUG THERAPY
  2. CYCLOSPORINE [Suspect]

REACTIONS (12)
  - APLASIA PURE RED CELL [None]
  - DISEASE PROGRESSION [None]
  - DYSPNOEA [None]
  - EPSTEIN-BARR VIRUS INFECTION [None]
  - HEPATOSPLENOMEGALY [None]
  - HISTIOCYTOSIS HAEMATOPHAGIC [None]
  - LYMPHADENOPATHY [None]
  - LYMPHOPROLIFERATIVE DISORDER [None]
  - MULTI-ORGAN FAILURE [None]
  - NECROSIS [None]
  - SKIN NODULE [None]
  - UPPER RESPIRATORY TRACT INFECTION [None]
